FAERS Safety Report 9880532 (Version 2)
Quarter: 2014Q1

REPORT INFORMATION
  Report Type: Spontaneous
  Country: US (occurrence: US)
  Receive Date: 20140207
  Receipt Date: 20140225
  Transmission Date: 20141002
  Serious: Yes (Other)
  Sender: FDA-Public Use
  Company Number: US-JNJFOC-20140201027

PATIENT
  Sex: Male

DRUGS (2)
  1. XARELTO [Suspect]
     Indication: THROMBOSIS PROPHYLAXIS
     Route: 048
  2. XARELTO [Suspect]
     Indication: KNEE OPERATION
     Route: 048

REACTIONS (2)
  - Haemarthrosis [Unknown]
  - Hypokinesia [Unknown]
